FAERS Safety Report 8803861 (Version 1)
Quarter: 2012Q4

REPORT INFORMATION
  Report Type: 
  Country: SE (occurrence: SE)
  Receive Date: 20120923
  Receipt Date: 20120923
  Transmission Date: 20130627
  Serious: Yes (Other)
  Sender: FDA-Public Use
  Company Number: SE-MYLANLABS-2012S1019170

PATIENT
  Age: 81 Year
  Sex: Female
  Weight: 50 kg

DRUGS (4)
  1. FELODIPINE [Suspect]
     Indication: HYPERTENSION
  2. FELODIPINE [Suspect]
     Indication: HYPERTENSION
  3. KREDEX [Concomitant]
     Indication: PRODUCT USED FOR UNKNOWN INDICATION
  4. CALCIUM [Concomitant]
     Indication: PRODUCT USED FOR UNKNOWN INDICATION

REACTIONS (4)
  - Headache [Recovered/Resolved]
  - Tinnitus [Recovered/Resolved]
  - Hypotension [Unknown]
  - Syncope [Unknown]
